FAERS Safety Report 20956559 (Version 1)
Quarter: 2022Q2

REPORT INFORMATION
  Report Type: Spontaneous
  Country: US (occurrence: None)
  Receive Date: 20220613
  Receipt Date: 20220613
  Transmission Date: 20220721
  Serious: Yes (Other)
  Sender: FDA-Public Use
  Company Number: None

PATIENT
  Age: 67 Year
  Sex: Female
  Weight: 79.65 kg

DRUGS (12)
  1. PAXLOVID [Suspect]
     Active Substance: NIRMATRELVIR\RITONAVIR
     Indication: COVID-19
     Dosage: OTHER QUANTITY : 3 TABLET(S);?FREQUENCY : TWICE A DAY;?
     Route: 048
     Dates: start: 20220612, end: 20220612
  2. Losaratan 100mg-1x/day [Concomitant]
  3. AIRBORNE [Concomitant]
     Active Substance: HERBALS\MINERALS\VITAMINS
  4. Hydrazaline 25mg-3x/day [Concomitant]
  5. Alvesco Inhaler 160mcg-2x/day [Concomitant]
  6. Flonase 2 sprays/day [Concomitant]
  7. Pataday-1x/day [Concomitant]
  8. Omeprazole 10mg-1x/day [Concomitant]
  9. albuterol 90 mcg/actuation inhaler-as needed [Concomitant]
  10. Cpap nightly [Concomitant]
  11. OREGANOL OIL [Concomitant]
  12. EPINEPHrine 0.3mg/0.3ml IM pen injector [Concomitant]

REACTIONS (14)
  - Abdominal distension [None]
  - Nausea [None]
  - Retching [None]
  - Dry mouth [None]
  - Dry throat [None]
  - Dysgeusia [None]
  - Blood pressure increased [None]
  - Feeling hot [None]
  - Paraesthesia [None]
  - Chest discomfort [None]
  - Back pain [None]
  - Arthralgia [None]
  - Neck pain [None]
  - Muscular weakness [None]

NARRATIVE: CASE EVENT DATE: 20220612
